FAERS Safety Report 7190706-6 (Version None)
Quarter: 2010Q4

REPORT INFORMATION
  Report Type: 
  Country: None (occurrence: None)
  Receive Date: 20101223
  Receipt Date: 20101214
  Transmission Date: 20110411
  Serious: Yes (Other)
  Sender: FDA-Public Use
  Company Number: SE-AMGEN-SWESP2010010809

PATIENT

DRUGS (2)
  1. ENBREL [Suspect]
     Indication: RHEUMATOID ARTHRITIS
     Dosage: 50 MG, WEEKLY
     Dates: start: 20060518, end: 20101110
  2. METHOTREXATE [Concomitant]
     Dosage: 2.5 MG, UNK

REACTIONS (5)
  - COUGH [None]
  - DYSPNOEA [None]
  - MALAISE [None]
  - PAIN IN JAW [None]
  - PALPITATIONS [None]
